FAERS Safety Report 5084003-2 (Version None)
Quarter: 2006Q3

REPORT INFORMATION
  Report Type: 
  Country: None (occurrence: None)
  Receive Date: 20060811
  Receipt Date: 20060802
  Transmission Date: 20061208
  Serious: Yes (Other)
  Sender: FDA-Public Use
  Company Number: GBWYE485302AUG06

PATIENT
  Age: 30 Year
  Sex: Female

DRUGS (5)
  1. EFFEXOR [Suspect]
     Indication: ANXIETY
     Dosage: SEE IMAGE, ORAL
     Route: 048
     Dates: start: 20060413, end: 20060607
  2. EFFEXOR [Suspect]
     Indication: ANXIETY
     Dosage: SEE IMAGE, ORAL
     Route: 048
     Dates: start: 20060607, end: 20060612
  3. EFFEXOR [Suspect]
     Indication: ANXIETY
     Dosage: SEE IMAGE, ORAL
     Route: 048
     Dates: start: 20060612, end: 20060621
  4. EFFEXOR [Suspect]
  5. PROPRANOL (PROPRANOL) [Concomitant]

REACTIONS (13)
  - DIZZINESS [None]
  - DRUG INEFFECTIVE [None]
  - DRUG WITHDRAWAL SYNDROME [None]
  - FEELING HOT [None]
  - HYPERHIDROSIS [None]
  - INCREASED TENDENCY TO BRUISE [None]
  - LIVER FUNCTION TEST ABNORMAL [None]
  - MALAISE [None]
  - MENORRHAGIA [None]
  - PLATELET COUNT DECREASED [None]
  - SKIN EXFOLIATION [None]
  - SKIN LESION [None]
  - SOMNOLENCE [None]
